FAERS Safety Report 8301530-2 (Version None)
Quarter: 2012Q2

REPORT INFORMATION
  Report Type: 
  Country: None (occurrence: None)
  Receive Date: 20120420
  Receipt Date: 20120412
  Transmission Date: 20120825
  Serious: Yes (Other)
  Sender: FDA-Public Use
  Company Number: JP-B.I. PHARMACEUTICALS,INC./RIDGEFIELD-2012-BP-05750NB

PATIENT
  Sex: Male
  Weight: 59.4 kg

DRUGS (1)
  1. TRAZENTA [Suspect]
     Indication: TYPE 2 DIABETES MELLITUS
     Dosage: 5 MG
     Route: 048
     Dates: start: 20120313, end: 20120319

REACTIONS (5)
  - VOMITING [None]
  - DIZZINESS [None]
  - CONSTIPATION [None]
  - DECREASED ACTIVITY [None]
  - DECREASED APPETITE [None]
